FAERS Safety Report 8488650-7 (Version None)
Quarter: 2012Q2

REPORT INFORMATION
  Report Type: 
  Country: None (occurrence: None)
  Receive Date: 20120626
  Receipt Date: 20120614
  Transmission Date: 20120825
  Serious: Yes (Other)
  Sender: FDA-Public Use
  Company Number: 2008JP000146

PATIENT
  Age: 53 Year
  Sex: Female

DRUGS (9)
  1. PROGRAF [Suspect]
     Indication: IMMUNOSUPPRESSANT DRUG THERAPY
     Dosage: , UNKNOWN
  2. PROGRAF [Suspect]
     Indication: LIVER TRANSPLANT
     Dosage: , UNKNOWN
  3. AMPHOTERICIN B (AMPHOTERICIN B) FORMULATION UNKNOWN [Concomitant]
  4. FLUMARIN /00963302/ (FLOMOXEF SODIUM) INJECTION [Concomitant]
  5. CYCLOSPORINE [Concomitant]
  6. AZATHIOPRINE [Concomitant]
  7. METHYLPREDNISOLONE [Concomitant]
  8. FUNGUARD (MICAFUNGIN) INJECTION [Suspect]
     Indication: ANTIFUNGAL PROPHYLAXIS
     Dosage: UNK, UNKNOWN
  9. ITRACONAZOLE (ITRACONAZOLE) FORMULATION UNKNOWN ONGOING [Concomitant]

REACTIONS (3)
  - DRUG INEFFECTIVE [None]
  - BRONCHOPULMONARY ASPERGILLOSIS [None]
  - BRAIN ABSCESS [None]
